FAERS Safety Report 8061173-5 (Version None)
Quarter: 2012Q1

REPORT INFORMATION
  Report Type: 
  Country: None (occurrence: None)
  Receive Date: 20120120
  Receipt Date: 20110620
  Transmission Date: 20120608
  Serious: No
  Sender: FDA-Public Use
  Company Number: US-ALLERGAN-1108341US

PATIENT
  Age: 68 Year
  Sex: Female

DRUGS (5)
  1. RESTASIS [Suspect]
     Indication: LACRIMATION DECREASED
     Dosage: 1 GTT, BID
     Route: 047
     Dates: start: 20110618
  2. GENTEAL [Concomitant]
     Dosage: UNK
     Route: 047
  3. LOTEMAX [Concomitant]
     Dosage: UNK
     Route: 047
  4. REFRESH FOR SENSITIVE EYES [Concomitant]
     Dosage: UNK
     Route: 047
  5. ONE (UNSPECIFIED) EYE DROP [Concomitant]
     Dosage: UNK
     Route: 047

REACTIONS (2)
  - EYE PAIN [None]
  - EYE BURNS [None]
